FAERS Safety Report 6225725-7 (Version None)
Quarter: 2009Q2

REPORT INFORMATION
  Report Type: 
  Country: None (occurrence: None)
  Receive Date: 20090612
  Receipt Date: 20090430
  Transmission Date: 20091009
  Serious: No
  Sender: FDA-Public Use
  Company Number: US-ABBOTT-09P-163-0571024-00

PATIENT
  Age: 66 Year
  Sex: Female
  Weight: 51.756 kg

DRUGS (2)
  1. HUMIRA [Suspect]
     Indication: RHEUMATOID ARTHRITIS
     Route: 058
     Dates: start: 20050101, end: 20050101
  2. HUMIRA [Suspect]
     Route: 058
     Dates: start: 20050101, end: 20080601

REACTIONS (5)
  - ANGINA PECTORIS [None]
  - CARDIAC FAILURE CONGESTIVE [None]
  - FEELING ABNORMAL [None]
  - INSOMNIA [None]
  - ORAL HERPES [None]
